FAERS Safety Report 7290119-2 (Version None)
Quarter: 2011Q1

REPORT INFORMATION
  Report Type: 
  Country: None (occurrence: None)
  Receive Date: 20110214
  Receipt Date: 20110207
  Transmission Date: 20110831
  Serious: Yes (Hospitalization)
  Sender: FDA-Public Use
  Company Number: ZA-BRISTOL-MYERS SQUIBB COMPANY-15533474

PATIENT
  Age: 47 Year
  Sex: Female
  Weight: 84 kg

DRUGS (4)
  1. LASIX [Concomitant]
     Indication: CARDIAC FAILURE CONGESTIVE
     Dates: start: 20101201
  2. PACLITAXEL [Suspect]
     Indication: BREAST CANCER
     Dosage: INTERRUPTED ON 18DEC10(74D),05JAN11
     Route: 042
     Dates: start: 20101006
  3. SLOW-K [Concomitant]
     Indication: CARDIAC FAILURE CONGESTIVE
     Dates: start: 20101201
  4. PERINDOPRIL ERBUMINE [Concomitant]
     Indication: CARDIAC FAILURE CONGESTIVE
     Dates: start: 20101201

REACTIONS (1)
  - PERICARDIAL EFFUSION [None]
